FAERS Safety Report 8545950-X (Version None)
Quarter: 2012Q3

REPORT INFORMATION
  Report Type: 
  Country: None (occurrence: None)
  Receive Date: 20120727
  Receipt Date: 20111123
  Transmission Date: 20120928
  Serious: No
  Sender: FDA-Public Use
  Company Number: US-ASTRAZENECA-2011SE71363

PATIENT
  Age: 30 Year
  Sex: Male
  Weight: 136.1 kg

DRUGS (3)
  1. SEROQUEL [Suspect]
     Indication: BIPOLAR DISORDER
     Route: 048
     Dates: start: 20090401
  2. LITHIUM CARBONATE [Concomitant]
  3. PERFENIDINE [Concomitant]

REACTIONS (4)
  - POOR QUALITY SLEEP [None]
  - INITIAL INSOMNIA [None]
  - FATIGUE [None]
  - DRUG DOSE OMISSION [None]
